FAERS Safety Report 8612639 (Version 3)
Quarter: 2013Q3

REPORT INFORMATION
  Report Type: Spontaneous
  Country: CA (occurrence: CA)
  Receive Date: 20120613
  Receipt Date: 20130819
  Transmission Date: 20140515
  Serious: Yes (Hospitalization, Other)
  Sender: FDA-Public Use
  Company Number: CA-ROCHE-1077740

PATIENT
  Sex: Female

DRUGS (2)
  1. XOLAIR [Suspect]
     Indication: ASTHMA
     Route: 058
     Dates: start: 20070420
  2. XOLAIR [Suspect]
     Route: 058
     Dates: start: 20090330

REACTIONS (6)
  - Mental disorder [Unknown]
  - Malaise [Unknown]
  - Viral myositis [Unknown]
  - Renal impairment [Unknown]
  - Respiratory disorder [Unknown]
  - White blood cell count decreased [Unknown]
